FAERS Safety Report 6259923-3 (Version None)
Quarter: 2009Q3

REPORT INFORMATION
  Report Type: 
  Country: None (occurrence: None)
  Receive Date: 20090708
  Receipt Date: 20090702
  Transmission Date: 20100115
  Serious: Yes (Hospitalization, Other)
  Sender: FDA-Public Use
  Company Number: PHHY2009JP22007

PATIENT
  Age: 83 Year
  Sex: Male

DRUGS (9)
  1. VOLTAREN [Suspect]
     Dosage: 100 MG/DAY
     Route: 048
  2. ARTIST [Concomitant]
     Route: 048
  3. NATRIX [Concomitant]
     Route: 048
  4. ZETIA [Concomitant]
     Route: 048
  5. PLAVIX [Concomitant]
     Route: 048
  6. OLMETEC [Concomitant]
     Route: 048
  7. ADALAT CC [Concomitant]
     Route: 048
  8. MEIACT [Concomitant]
     Route: 048
  9. CALONAL [Concomitant]
     Route: 065

REACTIONS (1)
  - INTERSTITIAL LUNG DISEASE [None]
